FAERS Safety Report 5895256-2 (Version None)
Quarter: 2008Q3

REPORT INFORMATION
  Report Type: 
  Country: None (occurrence: None)
  Receive Date: 20080924
  Receipt Date: 20080917
  Transmission Date: 20090109
  Serious: Yes (Hospitalization)
  Sender: FDA-Public Use
  Company Number: B0538258A

PATIENT
  Age: 45 Year
  Sex: Female

DRUGS (5)
  1. WARFARIN SODIUM [Suspect]
     Indication: DEEP VEIN THROMBOSIS
     Dates: start: 20060201
  2. CEPHALEXIN [Suspect]
     Indication: CELLULITIS
     Dosage: 500MG FOUR TIMES PER DAY
     Route: 048
     Dates: start: 20070512
  3. PREDNISONE [Suspect]
     Route: 048
  4. CEFAZOLIN [Suspect]
     Indication: PROPHYLAXIS
     Route: 042
     Dates: start: 20070507
  5. HEPARIN [Concomitant]
     Dates: end: 20070510

REACTIONS (6)
  - CELLULITIS [None]
  - DRUG INTERACTION [None]
  - INTERNATIONAL NORMALISED RATIO INCREASED [None]
  - LEUKOCYTOCLASTIC VASCULITIS [None]
  - PETECHIAE [None]
  - RASH [None]
